FAERS Safety Report 9312322 (Version 2)
Quarter: 2013Q3

REPORT INFORMATION
  Report Type: Report from Study
  Country: US (occurrence: US)
  Receive Date: 20130528
  Receipt Date: 20130701
  Transmission Date: 20140515
  Serious: Yes (Other)
  Sender: FDA-Public Use
  Company Number: US-BAXTER-2013BAX018998

PATIENT
  Age: 68 Year
  Sex: Male
  Weight: 60.91 kg

DRUGS (7)
  1. ARALAST NP [Suspect]
     Indication: ALPHA-1 ANTI-TRYPSIN DEFICIENCY
     Route: 042
     Dates: start: 201205
  2. ADVAIR [Concomitant]
     Indication: ALPHA-1 ANTI-TRYPSIN DEFICIENCY
     Dosage: 250/50
  3. ALBUTEROL [Concomitant]
     Indication: ALPHA-1 ANTI-TRYPSIN DEFICIENCY
     Dates: start: 201305
  4. ALBUTEROL INHALER [Concomitant]
     Indication: ALPHA-1 ANTI-TRYPSIN DEFICIENCY
  5. ALPRAZOLAM [Concomitant]
     Indication: SLEEP DISORDER
     Route: 048
  6. OXYGEN [Concomitant]
     Indication: ALPHA-1 ANTI-TRYPSIN DEFICIENCY
     Dosage: 2 LITERS/MINUTE
  7. OXYGEN [Concomitant]
     Indication: DYSPNOEA
     Dosage: 2 LITERS/MINUTE
     Dates: start: 2013

REACTIONS (5)
  - Lung infection [Not Recovered/Not Resolved]
  - Weight decreased [Not Recovered/Not Resolved]
  - Hiatus hernia [Not Recovered/Not Resolved]
  - Ulcer [Not Recovered/Not Resolved]
  - Dyspnoea [Not Recovered/Not Resolved]
